FAERS Safety Report 7564883-9 (Version None)
Quarter: 2011Q2

REPORT INFORMATION
  Report Type: 
  Country: None (occurrence: None)
  Receive Date: 20110622
  Receipt Date: 20110127
  Transmission Date: 20111010
  Serious: Yes (Other)
  Sender: FDA-Public Use
  Company Number: US-MYLANLABS-2011S1001952

PATIENT
  Age: 18 Year
  Sex: Female

DRUGS (4)
  1. CLOZAPINE [Suspect]
     Indication: SCHIZOPHRENIA
     Route: 048
     Dates: start: 20100401, end: 20110121
  2. LAMICTAL [Concomitant]
     Route: 048
     Dates: start: 20101215
  3. ADDERALL XR 10 [Concomitant]
     Indication: ATTENTION DEFICIT/HYPERACTIVITY DISORDER
     Route: 048
     Dates: start: 20090101
  4. SEROQUEL XR [Concomitant]
     Indication: DEPRESSION
     Route: 048
     Dates: start: 20100504

REACTIONS (1)
  - GRANULOCYTOPENIA [None]
